FAERS Safety Report 21803462 (Version 1)
Quarter: 2023Q1

REPORT INFORMATION
  Report Type: Spontaneous
  Country: US (occurrence: US)
  Receive Date: 20230101
  Receipt Date: 20230101
  Transmission Date: 20230417
  Serious: No
  Sender: FDA-Public Use
  Company Number: US-STERISCIENCE B.V.-2021M1093653

PATIENT
  Age: 51 Year
  Sex: Male

DRUGS (4)
  1. MIDAZOLAM [Suspect]
     Active Substance: MIDAZOLAM
     Indication: Sedative therapy
     Dosage: 5 MILLIGRAM
  2. MIDAZOLAM [Suspect]
     Active Substance: MIDAZOLAM
     Dosage: AGAIN RECEIVED MIDAZOLAM 5MG
  3. PROPOFOL [Concomitant]
     Active Substance: PROPOFOL
     Indication: Sedative therapy
     Dosage: RECEIVED INFUSION BETWEEN 50 AND 75 MICROGRAM/KG/MIN.
  4. KETAMINE [Concomitant]
     Active Substance: KETAMINE
     Indication: Sedative therapy
     Dosage: 50 MILLIGRAM

REACTIONS (5)
  - Hiccups [None]
  - Emotional distress [None]
  - Loss of personal independence in daily activities [None]
  - Insomnia [None]
  - Dysphagia [None]
